FAERS Safety Report 6609767-5 (Version None)
Quarter: 2010Q1

REPORT INFORMATION
  Report Type: 
  Country: None (occurrence: None)
  Receive Date: 20100302
  Receipt Date: 20100215
  Transmission Date: 20100710
  Serious: Yes (Hospitalization)
  Sender: FDA-Public Use
  Company Number: PHHY2010GB09265

PATIENT
  Age: 36 Year
  Sex: Male

DRUGS (8)
  1. CLOZAPINE [Suspect]
     Route: 048
  2. CLOZAPINE [Suspect]
     Dosage: FIFTY TABLETS OF MEDICATION
     Dates: start: 20040121
  3. ATIVAN [Suspect]
     Route: 048
  4. CITALOPRAM HYDROBROMIDE [Suspect]
  5. DIAZEPAM [Suspect]
  6. GAVISCON [Concomitant]
  7. PARACETAMOL [Concomitant]
  8. TEMAZEPAM [Concomitant]

REACTIONS (2)
  - INTENTIONAL OVERDOSE [None]
  - SUICIDE ATTEMPT [None]
